FAERS Safety Report 7551910-8 (Version None)
Quarter: 2011Q2

REPORT INFORMATION
  Report Type: 
  Country: None (occurrence: None)
  Receive Date: 20110616
  Receipt Date: 20110602
  Transmission Date: 20111010
  Serious: Yes (Death, Other)
  Sender: FDA-Public Use
  Company Number: US-BAYER-2011-009478

PATIENT
  Age: 81 Year
  Sex: Female
  Weight: 73 kg

DRUGS (46)
  1. PAPAVERINE [Concomitant]
     Dosage: 60 MG, UNK
     Route: 061
     Dates: start: 20020819, end: 20020819
  2. HEPARIN [Concomitant]
     Dosage: 10 U VIA HEPLOCK FLUSH
     Dates: start: 20020819, end: 20020819
  3. GARAMYCIN [Concomitant]
     Dosage: 40 MG VIA IRRIGATION
     Dates: start: 20020819, end: 20020819
  4. MANNITOL [Concomitant]
     Dosage: 12.5 G, UNK
     Dates: start: 20020819, end: 20020819
  5. ARTHROTEC [Concomitant]
     Route: 048
  6. VIOXX [Concomitant]
     Dosage: 12.5 MG, QD
     Route: 048
  7. CARDURA [Concomitant]
     Dosage: 2 MG, UNK
     Route: 048
     Dates: start: 20020125, end: 20020911
  8. PAPAVERINE [Concomitant]
     Dosage: 60 MG VIA SOAK
     Dates: start: 20020819, end: 20020819
  9. HEPARIN [Concomitant]
     Dosage: 12000 U (TOTAL)
     Dates: start: 20020819, end: 20020819
  10. DOBUTAMINE HYDROCHLORIDE [Concomitant]
     Dosage: UNK (TITRATED)
     Dates: start: 20020819, end: 20020819
  11. ALBUMIN (HUMAN) [Concomitant]
     Dosage: 250 ML, UNK
     Dates: start: 20020819, end: 20020819
  12. FENTANYL-100 [Concomitant]
     Dosage: 1.25 MG, UNK
     Dates: start: 20020819, end: 20020819
  13. CARDIA [Concomitant]
     Dosage: 2 MG, BID
     Route: 048
  14. REGLAN [Concomitant]
     Dosage: 10 MG, QD
     Route: 048
  15. PLAVIX [Concomitant]
     Dosage: 75 MG, QD
     Route: 048
     Dates: start: 20010405, end: 20020911
  16. DIPYRIDAMOLE [Concomitant]
     Dosage: 25 MG, UNK
     Route: 048
     Dates: start: 20020325, end: 20020911
  17. HEPARIN [Concomitant]
     Dosage: 30000 U VIA CELL SAVER
     Dates: start: 20020819, end: 20020819
  18. HEPARIN [Concomitant]
     Dosage: 1000 U VIA SOAK
     Dates: start: 20020819, end: 20020819
  19. GARAMYCIN [Concomitant]
     Dosage: 80 MG VIA CHEST IRRIGATION
     Dates: start: 20020819, end: 20020819
  20. REGULAR INSULIN [Concomitant]
     Dosage: UNK
     Dates: start: 20020819, end: 20020819
  21. MORPHINE SULFATE [Concomitant]
     Dosage: 10 MG, UNK
     Dates: start: 20020819, end: 20020819
  22. MOTRIN [Concomitant]
     Route: 048
  23. DILTIAZEM [Concomitant]
     Dosage: 120/24 MG
     Route: 048
     Dates: start: 20011207, end: 20020911
  24. PAPAVERINE [Concomitant]
     Dosage: 60 MG, UNK
     Dates: start: 20020819, end: 20020819
  25. DIGOXIN [Concomitant]
     Dosage: 0.5 MG/2 ML
     Dates: start: 20020819, end: 20020819
  26. CEFAZOLIN [Concomitant]
     Dosage: 1 G, UNK
     Dates: start: 20020819, end: 20020819
  27. ONDANSETRON [Concomitant]
     Dosage: 4 MG, UNK
     Dates: start: 20020819, end: 20020819
  28. NEXIUM [Concomitant]
     Route: 048
  29. IMODIUM [Concomitant]
     Indication: DIARRHOEA
     Dosage: AS NEEDED
     Route: 048
  30. RED BLOOD CELLS [Concomitant]
     Dosage: 3 U, UNK
     Route: 042
     Dates: start: 20020819, end: 20020819
  31. TRASYLOL [Suspect]
     Dosage: 200 ML (LOADING DOSE)
     Route: 042
     Dates: start: 20020819, end: 20020819
  32. TRASYLOL [Suspect]
     Dosage: 200 ML (TOTAL FOR INFUSION)
     Route: 042
     Dates: start: 20020819, end: 20020819
  33. CARDIZEM CD [Concomitant]
     Dosage: 120 MG, BID
     Route: 048
  34. CARDIZEM CD [Concomitant]
     Dosage: UNK
  35. DARVOCET [Concomitant]
     Dosage: AS NEEDED
     Route: 048
  36. GARAMYCIN [Concomitant]
     Dosage: 40 MG VIA SOAK
     Dates: start: 20020819, end: 20020819
  37. DIPHENHYDRAMINE HCL [Concomitant]
     Dosage: 50 MG, UNK
     Dates: start: 20020819, end: 20020819
  38. PHENYLEPHRINE HCL [Concomitant]
     Dosage: 10 MG, UNK
     Dates: start: 20020819, end: 20020819
  39. PROTAMINE SULFATE [Concomitant]
     Dosage: 10 MG, UNK
     Dates: start: 20020819, end: 20020819
  40. MIDAZOLAM HCL [Concomitant]
     Dosage: UNK
     Route: 042
     Dates: start: 20020819, end: 20020819
  41. DIOVAN [Concomitant]
     Dosage: 160 MG, BID
     Route: 048
     Dates: start: 20020514, end: 20020911
  42. PERSANTINE [Concomitant]
     Dosage: 25 MG, BID
     Route: 048
  43. MAGNESIUM SULFATE [Concomitant]
     Dosage: 1 G, UNK
     Dates: start: 20020819, end: 20020819
  44. ALBUMIN [ALBUMEN] [Concomitant]
     Dosage: 250 ML, UNK
     Dates: start: 20020819, end: 20020819
  45. TRASYLOL [Suspect]
     Indication: CORONARY ARTERY BYPASS
     Dosage: 200 ML, (CARDIOPULMONARY BYPASS PRIME)
     Route: 042
     Dates: start: 20020819, end: 20020819
  46. PAPAVERINE [Concomitant]
     Dosage: 60 MG, INJECTION
     Dates: start: 20020819, end: 20020819

REACTIONS (14)
  - RENAL INJURY [None]
  - PAIN [None]
  - ANHEDONIA [None]
  - NERVOUSNESS [None]
  - FEAR OF DEATH [None]
  - FEAR [None]
  - INJURY [None]
  - EMOTIONAL DISTRESS [None]
  - ANXIETY [None]
  - UNEVALUABLE EVENT [None]
  - DEATH [None]
  - RENAL FAILURE [None]
  - MULTI-ORGAN FAILURE [None]
  - DEPRESSION [None]
